FAERS Safety Report 6292040-5 (Version None)
Quarter: 2009Q3

REPORT INFORMATION
  Report Type: 
  Country: None (occurrence: None)
  Receive Date: 20090731
  Receipt Date: 20090724
  Transmission Date: 20100115
  Serious: Yes (Hospitalization)
  Sender: FDA-Public Use
  Company Number: US-BIOGENIDEC-2009BI009800

PATIENT
  Sex: Male

DRUGS (13)
  1. TYSABRI [Suspect]
     Indication: MULTIPLE SCLEROSIS
     Route: 042
     Dates: start: 20081218
  2. MEDICATIONS NOS [Concomitant]
     Indication: SUICIDAL IDEATION
  3. MEDICATIONS NOS [Concomitant]
     Indication: BIPOLAR I DISORDER
  4. PROPRANOLOL HYDROCHLORIDE [Concomitant]
     Indication: TREMOR
  5. METFORMIN [Concomitant]
     Route: 048
  6. ERGOCALCIFEROL [Concomitant]
  7. DEPAKOTE [Concomitant]
     Route: 048
  8. ZOCOR [Concomitant]
     Route: 048
  9. FLORINEF [Concomitant]
  10. SEROQUEL [Concomitant]
  11. VALIUM [Concomitant]
  12. SYNTHROID [Concomitant]
     Route: 048
  13. GLIPIZIDE [Concomitant]

REACTIONS (15)
  - APHASIA [None]
  - BIPOLAR I DISORDER [None]
  - CONFUSIONAL STATE [None]
  - COORDINATION ABNORMAL [None]
  - CYSTITIS [None]
  - DECREASED ACTIVITY [None]
  - EMOTIONAL DISORDER [None]
  - GAIT DISTURBANCE [None]
  - MENTAL STATUS CHANGES [None]
  - MOBILITY DECREASED [None]
  - PYREXIA [None]
  - SUICIDAL IDEATION [None]
  - SYNCOPE [None]
  - URINARY TRACT INFECTION [None]
  - VISUAL IMPAIRMENT [None]
